FAERS Safety Report 5730675-6 (Version None)
Quarter: 2008Q2

REPORT INFORMATION
  Report Type: 
  Country: None (occurrence: None)
  Receive Date: 20080505
  Receipt Date: 20080505
  Transmission Date: 20081010
  Serious: Yes (Life-Threatening)
  Sender: FDA-Public Use
  Company Number: None

PATIENT
  Age: 11 Year
  Sex: Female
  Weight: 26.7622 kg

DRUGS (1)
  1. SINGULAIR [Suspect]
     Indication: HYPERSENSITIVITY
     Dosage: 1 PILL EVERY DAY PO
     Route: 048
     Dates: start: 20050301, end: 20080504

REACTIONS (6)
  - ABNORMAL DREAMS [None]
  - FEAR [None]
  - INSOMNIA [None]
  - MOOD SWINGS [None]
  - PARANOIA [None]
  - SUICIDAL IDEATION [None]
